FAERS Safety Report 6546725-3 (Version None)
Quarter: 2010Q1

REPORT INFORMATION
  Report Type: 
  Country: None (occurrence: None)
  Receive Date: 20100122
  Receipt Date: 20100113
  Transmission Date: 20100710
  Serious: Yes (Hospitalization)
  Sender: FDA-Public Use
  Company Number: US-ELI_LILLY_AND_COMPANY-US201001002886

PATIENT
  Sex: Female

DRUGS (1)
  1. ZYPREXA [Suspect]
     Dosage: 10 MG, 2/D

REACTIONS (3)
  - ADVERSE EVENT [None]
  - ANXIETY [None]
  - HYPERTENSION [None]
